FAERS Safety Report 8933357 (Version 1)
Quarter: 2012Q4

REPORT INFORMATION
  Report Type: 
  Country: GB (occurrence: GB)
  Receive Date: 20121129
  Receipt Date: 20121129
  Transmission Date: 20130627
  Serious: Yes (Other)
  Sender: FDA-Public Use
  Company Number: GB-AMGEN-GBRCT2012027558

PATIENT
  Age: 51 Year
  Sex: Female

DRUGS (1)
  1. ETANERCEPT [Suspect]
     Indication: RHEUMATOID ARTHRITIS
     Dosage: 25 mg, 2x/week
     Dates: start: 20040608

REACTIONS (2)
  - Female reproductive tract carcinoma in situ [Recovered/Resolved]
  - Endometrial hyperplasia [Recovered/Resolved]
